FAERS Safety Report 10259483 (Version 1)
Quarter: 2014Q2

REPORT INFORMATION
  Report Type: Spontaneous
  Country: US (occurrence: US)
  Receive Date: 20140625
  Receipt Date: 20140625
  Transmission Date: 20141212
  Serious: Yes (Other)
  Sender: FDA-Public Use
  Company Number: US-PFIZER INC-2014171969

PATIENT
  Age: 80 Year
  Sex: Female
  Weight: 64.4 kg

DRUGS (2)
  1. SUTENT [Suspect]
     Indication: PANCREATIC CARCINOMA
     Dosage: 50 MG, DAILY
     Dates: start: 20140602
  2. SYNTHROID [Concomitant]
     Dosage: UNK

REACTIONS (8)
  - Rectal haemorrhage [Unknown]
  - Adrenal disorder [Unknown]
  - Renal disorder [Unknown]
  - Dry mouth [Unknown]
  - Oral pain [Unknown]
  - Dry eye [Unknown]
  - Nausea [Unknown]
  - Vomiting [Unknown]
